FAERS Safety Report 9934538 (Version 1)
Quarter: 2014Q1

REPORT INFORMATION
  Report Type: Spontaneous
  Country: MX (occurrence: MX)
  Receive Date: 20140228
  Receipt Date: 20140228
  Transmission Date: 20141002
  Serious: Yes (Other)
  Sender: FDA-Public Use
  Company Number: PHHY2014MX023137

PATIENT
  Age: 70 Year
  Sex: Male

DRUGS (3)
  1. ONBREZ [Suspect]
     Indication: BRONCHIAL DISORDER
     Dosage: 150 UG, QID
     Route: 055
     Dates: start: 20131226
  2. ONBREZ [Suspect]
     Indication: NASAL CONGESTION
  3. ONBREZ [Suspect]
     Indication: OFF LABEL USE

REACTIONS (8)
  - Haemorrhage [Not Recovered/Not Resolved]
  - Prostatomegaly [Not Recovered/Not Resolved]
  - Dyspnoea [Not Recovered/Not Resolved]
  - Insomnia [Not Recovered/Not Resolved]
  - Increased upper airway secretion [Not Recovered/Not Resolved]
  - Nasal disorder [Not Recovered/Not Resolved]
  - Cough [Not Recovered/Not Resolved]
  - Drug prescribing error [Unknown]
